FAERS Safety Report 16811286 (Version 1)
Quarter: 2019Q3

REPORT INFORMATION
  Report Type: Spontaneous
  Country: US (occurrence: US)
  Receive Date: 20190916
  Receipt Date: 20190916
  Transmission Date: 20191005
  Serious: No
  Sender: FDA-Public Use
  Company Number: US-009507513-1909USA004716

PATIENT
  Sex: Female

DRUGS (2)
  1. REMERON [Suspect]
     Active Substance: MIRTAZAPINE
     Dosage: 15 MILLIGRAM, QD
  2. REMERON [Suspect]
     Active Substance: MIRTAZAPINE
     Indication: HEAD TITUBATION
     Dosage: UNK

REACTIONS (1)
  - Muscular weakness [Unknown]
